FAERS Safety Report 7395079-1 (Version None)
Quarter: 2011Q2

REPORT INFORMATION
  Report Type: 
  Country: None (occurrence: None)
  Receive Date: 20110405
  Receipt Date: 20110329
  Transmission Date: 20111010
  Serious: Yes (Death)
  Sender: FDA-Public Use
  Company Number: DE-MEDIMMUNE-MEDI-0013013

PATIENT

DRUGS (1)
  1. SYNAGIS [Suspect]

REACTIONS (1)
  - HEPATIC FAILURE [None]
